FAERS Safety Report 6111215-9 (Version None)
Quarter: 2009Q1

REPORT INFORMATION
  Report Type: 
  Country: None (occurrence: None)
  Receive Date: 20090309
  Receipt Date: 20080814
  Transmission Date: 20090719
  Serious: Yes (Life-Threatening, Hospitalization)
  Sender: FDA-Public Use
  Company Number: GXKR2009DE02665

PATIENT
  Age: 70 Year
  Sex: Female
  Weight: 77 kg

DRUGS (6)
  1. ASS 100  (ACETYLSALICYLIC ACID) TABLET [Suspect]
     Indication: POLYCYTHAEMIA
     Dosage: ORAL
     Route: 047
     Dates: end: 20060213
  2. FURORESE       (FUROSEMIDE) [Concomitant]
  3. L-THYROXINE          (LEVOTHYROXINE) [Concomitant]
  4. LITALIR          (HYDROXYCARBAMIDE) [Concomitant]
  5. PANTOPRAZOLE SODIUM [Concomitant]
  6. VERAPAMIL [Concomitant]

REACTIONS (2)
  - DRUG INTERACTION [None]
  - GASTROINTESTINAL HAEMORRHAGE [None]
